FAERS Safety Report 11655060 (Version 5)
Quarter: 2016Q1

REPORT INFORMATION
  Report Type: Spontaneous
  Country: BR (occurrence: BR)
  Receive Date: 20151023
  Receipt Date: 20160219
  Transmission Date: 20160525
  Serious: Yes (Other)
  Sender: FDA-Public Use
  Company Number: BR-PFIZER INC-2015351359

PATIENT
  Age: 53 Year
  Sex: Female
  Weight: 110 kg

DRUGS (3)
  1. CHAMPIX [Suspect]
     Active Substance: VARENICLINE TARTRATE
     Dosage: 1 TABLET, DAILY
     Dates: start: 201511
  2. CHAMPIX [Suspect]
     Active Substance: VARENICLINE TARTRATE
     Dosage: 2 TABLETS, DAILY
     Dates: end: 201601
  3. CHAMPIX [Suspect]
     Active Substance: VARENICLINE TARTRATE
     Indication: SMOKING CESSATION THERAPY
     Dosage: UNK
     Route: 048
     Dates: start: 201501

REACTIONS (4)
  - Obesity [Unknown]
  - Malaise [Unknown]
  - Oesophageal neoplasm [Recovering/Resolving]
  - Eating disorder [Unknown]

NARRATIVE: CASE EVENT DATE: 2015
